FAERS Safety Report 18524100 (Version 1)
Quarter: 2020Q4

REPORT INFORMATION
  Report Type: Spontaneous
  Country: TR (occurrence: TR)
  Receive Date: 20201119
  Receipt Date: 20201119
  Transmission Date: 20210114
  Serious: Yes (Other)
  Sender: FDA-Public Use
  Company Number: TR-MYLANLABS-PHHY2010TR11128

PATIENT
  Age: 19 Year
  Sex: Male

DRUGS (20)
  1. HALOPERIDOL. [Suspect]
     Active Substance: HALOPERIDOL
     Dosage: 4 MILLIGRAM, QD
     Route: 065
  2. RISPERIDON [Suspect]
     Active Substance: RISPERIDONE
     Indication: TOURETTE^S DISORDER
     Dosage: 1 MILLIGRAM, QD
     Route: 065
  3. HALOPERIDOL. [Suspect]
     Active Substance: HALOPERIDOL
     Dosage: 5 MILLIGRAM, QD
     Route: 065
  4. HALOPERIDOL. [Suspect]
     Active Substance: HALOPERIDOL
     Dosage: 2.5 MILLIGRAM, QD (AFTER AGE 19YEAR)
     Route: 065
  5. RISPERIDON [Suspect]
     Active Substance: RISPERIDONE
     Dosage: 2 MILLIGRAM, QD
     Route: 065
  6. RISPERIDON [Suspect]
     Active Substance: RISPERIDONE
     Dosage: 3 MILLIGRAM, QD
     Route: 065
  7. HALOPERIDOL. [Suspect]
     Active Substance: HALOPERIDOL
     Dosage: 3 MILLIGRAM, QD
     Route: 065
  8. RISPERIDON [Suspect]
     Active Substance: RISPERIDONE
     Dosage: 4 MILLIGRAM, QD
     Route: 065
  9. CLOZAPINE. [Suspect]
     Active Substance: CLOZAPINE
     Indication: TOURETTE^S DISORDER
     Dosage: STARTED AT 12.5MG/DAY
     Route: 065
  10. HALOPERIDOL. [Suspect]
     Active Substance: HALOPERIDOL
     Dosage: 15 MILLIGRAM, QD, INCREASED BY 2 MG WEEKLY UP TO 15 MG/DAY FOR A PERIOD OF ONE MONTH
     Route: 065
  11. RISPERIDON [Suspect]
     Active Substance: RISPERIDONE
     Dosage: 6 MILLIGRAM, QD (AFTER 1 WEEK IT WAS MORE INCREASED UP TO 6 MG/DAY)
     Route: 065
  12. RISPERIDON [Suspect]
     Active Substance: RISPERIDONE
     Dosage: 8 MILLIGRAM, QD (INCREASED UP TO 8 MG/DAY)
     Route: 065
  13. HALOPERIDOL. [Suspect]
     Active Substance: HALOPERIDOL
     Indication: TOURETTE^S DISORDER
     Dosage: 1 MILLIGRAM, QD (AT AGE 14 YEAR)
     Route: 065
  14. CLOZAPINE. [Suspect]
     Active Substance: CLOZAPINE
     Dosage: TITRATED UP TO 150MG/DAY
     Route: 065
  15. HALOPERIDOL. [Suspect]
     Active Substance: HALOPERIDOL
     Dosage: 2 MILLIGRAM, QD
     Route: 065
  16. HALOPERIDOL. [Suspect]
     Active Substance: HALOPERIDOL
     Dosage: 20 MILLIGRAM, QD, INCREASED UP TO 20 MG/DAY FOR A PERIOD OF 3 WEEKS
     Route: 065
  17. RISPERIDON [Suspect]
     Active Substance: RISPERIDONE
     Dosage: 1 MILLIGRAM, QD (AFTER AGE OF 19 YEARS)
     Route: 065
  18. HALOPERIDOL. [Suspect]
     Active Substance: HALOPERIDOL
     Dosage: 6 MILLIGRAM, QD
     Route: 065
  19. RISPERIDON [Suspect]
     Active Substance: RISPERIDONE
     Dosage: 4 MILLIGRAM, QD (DOSE WAS INCREASED UP TO 4 MG/DAY)
     Route: 065
  20. RISPERIDON [Suspect]
     Active Substance: RISPERIDONE
     Dosage: 6 MILLIGRAM, QD
     Route: 065

REACTIONS (9)
  - Fatigue [Not Recovered/Not Resolved]
  - Disturbance in attention [Recovered/Resolved]
  - Sedation [Unknown]
  - Polyuria [Recovered/Resolved]
  - Weight increased [Not Recovered/Not Resolved]
  - Drug ineffective [Unknown]
  - Hypersomnia [Recovered/Resolved]
  - Polydipsia [Recovered/Resolved]
  - Restlessness [Recovered/Resolved]
